FAERS Safety Report 6508009-9 (Version None)
Quarter: 2009Q4

REPORT INFORMATION
  Report Type: 
  Country: None (occurrence: None)
  Receive Date: 20091210
  Receipt Date: 20090908
  Transmission Date: 20100525
  Serious: Yes (Other)
  Sender: FDA-Public Use
  Company Number: CIP09002527

PATIENT
  Age: 54 Year
  Sex: Female

DRUGS (1)
  1. ACTONEL [Suspect]
     Indication: OSTEOPENIA
     Dosage: 150 MG ONCE ONLY, ORAL
     Route: 048

REACTIONS (8)
  - ARTHRALGIA [None]
  - BEDRIDDEN [None]
  - GAIT DISTURBANCE [None]
  - GASTRITIS [None]
  - MYALGIA [None]
  - PAIN [None]
  - PYREXIA [None]
  - THERAPEUTIC AGENT TOXICITY [None]
